FAERS Safety Report 17912772 (Version 2)
Quarter: 2020Q2

REPORT INFORMATION
  Report Type: Other
  Country: US (occurrence: US)
  Receive Date: 20200618
  Receipt Date: 20200630
  Transmission Date: 20200714
  Serious: Yes (Hospitalization, Other)
  Sender: FDA-Public Use
  Company Number: US-BRECKENRIDGE PHARMACEUTICAL, INC.-2086074

PATIENT
  Age: 62 Year
  Sex: Female

DRUGS (5)
  1. MELOXICAM. [Suspect]
     Active Substance: MELOXICAM
     Indication: POSTOPERATIVE ANALGESIA
     Route: 048
  2. ASPIRIN. [Interacting]
     Active Substance: ASPIRIN
  3. OXYCODONE. [Concomitant]
     Active Substance: OXYCODONE HYDROCHLORIDE
  4. OXYMORPHONE HYDROCHLORIDE EXTENDED-RELEASE [Concomitant]
     Active Substance: OXYMORPHONE HYDROCHLORIDE
  5. ADDERALL XR [Concomitant]
     Active Substance: AMPHETAMINE ASPARTATE\AMPHETAMINE SULFATE\DEXTROAMPHETAMINE SACCHARATE\DEXTROAMPHETAMINE SULFATE

REACTIONS (2)
  - Embolism venous [None]
  - Drug interaction [None]
